FAERS Safety Report 24015740 (Version 1)
Quarter: 2024Q2

REPORT INFORMATION
  Report Type: Report from Study
  Country: US (occurrence: US)
  Receive Date: 20240626
  Receipt Date: 20240626
  Transmission Date: 20240715
  Serious: Yes (Hospitalization)
  Sender: FDA-Public Use
  Company Number: US-002147023-NVSC2019US054887

PATIENT
  Sex: Female
  Weight: 46.259 kg

DRUGS (7)
  1. TREPROSTINIL [Suspect]
     Active Substance: TREPROSTINIL
     Indication: Pulmonary arterial hypertension
     Dosage: (20 NG/KG/ MIN), CONT
     Route: 042
     Dates: start: 20191122
  2. TREPROSTINIL [Suspect]
     Active Substance: TREPROSTINIL
     Dosage: (20 NG/KG/ MIN), CONT
     Route: 065
     Dates: start: 20210208
  3. TREPROSTINIL [Suspect]
     Active Substance: TREPROSTINIL
     Dosage: UNK
     Route: 065
  4. TREPROSTINIL [Suspect]
     Active Substance: TREPROSTINIL
     Dosage: UNK, CONT, 30 NG/KG/MIN
     Route: 042
     Dates: start: 20210208
  5. AMLODIPINE [Concomitant]
     Active Substance: AMLODIPINE BESYLATE
     Indication: Product used for unknown indication
     Route: 065
  6. SILDENAFIL CITRATE [Concomitant]
     Active Substance: SILDENAFIL CITRATE
     Indication: Product used for unknown indication
     Route: 065
  7. XARELTO [Concomitant]
     Active Substance: RIVAROXABAN
     Indication: Product used for unknown indication
     Route: 065

REACTIONS (5)
  - Gastrointestinal disorder [Unknown]
  - Faeces soft [Unknown]
  - Headache [Unknown]
  - Pruritus [Unknown]
  - Abdominal pain [Unknown]
